FAERS Safety Report 10152363 (Version 2)
Quarter: 2014Q2

REPORT INFORMATION
  Report Type: Spontaneous
  Country: GB (occurrence: GB)
  Receive Date: 20140505
  Receipt Date: 20140505
  Transmission Date: 20141212
  Serious: Yes (Other)
  Sender: FDA-Public Use
  Company Number: GB-PFIZER INC-2014107909

PATIENT
  Age: 44 Year
  Sex: Female

DRUGS (2)
  1. CABERGOLINE [Suspect]
     Indication: HYPERPROLACTINAEMIA
     Dosage: 0.5 MG, WEEKLY
     Dates: start: 2001, end: 2005
  2. CABERGOLINE [Suspect]
     Dosage: 3 MG, WEEKLY

REACTIONS (5)
  - Binge eating [Unknown]
  - Compulsive shopping [Unknown]
  - Self-injurious ideation [Unknown]
  - Impulse-control disorder [Unknown]
  - Weight abnormal [Unknown]
